FAERS Safety Report 5549993-X (Version None)
Quarter: 2007Q4

REPORT INFORMATION
  Report Type: 
  Country: None (occurrence: None)
  Receive Date: 20071212
  Receipt Date: 20061217
  Transmission Date: 20080405
  Serious: No
  Sender: FDA-Public Use
  Company Number: US-BRISTOL-MYERS SQUIBB COMPANY-13622378

PATIENT
  Sex: Female

DRUGS (1)
  1. SERZONE [Suspect]
     Indication: DEPRESSION
     Dates: start: 19930101

REACTIONS (1)
  - DEPRESSION [None]
